FAERS Safety Report 6186788-0 (Version None)
Quarter: 2009Q2

REPORT INFORMATION
  Report Type: 
  Country: None (occurrence: None)
  Receive Date: 20090512
  Receipt Date: 20090508
  Transmission Date: 20091009
  Serious: Yes (Death)
  Sender: FDA-Public Use
  Company Number: CN-ROCHE-631931

PATIENT
  Sex: Female
  Weight: 30 kg

DRUGS (2)
  1. CAPECITABINE [Suspect]
     Indication: DRUG USE FOR UNKNOWN INDICATION
     Route: 048
     Dates: start: 20090403
  2. ERLOTINIB [Suspect]
     Indication: DRUG USE FOR UNKNOWN INDICATION
     Dosage: FORM: PELLET.
     Route: 048
     Dates: start: 20090403

REACTIONS (1)
  - RESPIRATORY FAILURE [None]
